FAERS Safety Report 18696303 (Version 7)
Quarter: 2022Q2

REPORT INFORMATION
  Report Type: Spontaneous
  Country: CA (occurrence: CA)
  Receive Date: 20210104
  Receipt Date: 20220405
  Transmission Date: 20220721
  Serious: Yes (Hospitalization, Other)
  Sender: FDA-Public Use
  Company Number: CA-PFIZER INC-2020513792

PATIENT
  Age: 45 Year
  Sex: Male
  Weight: 70 kg

DRUGS (5)
  1. RUXIENCE [Suspect]
     Active Substance: RITUXIMAB-PVVR
     Indication: Rheumatoid arthritis
     Dosage: 1000 MG DAY 1 AND DAY15
     Route: 042
     Dates: start: 20201214, end: 20210112
  2. RUXIENCE [Suspect]
     Active Substance: RITUXIMAB-PVVR
     Dosage: 1000 MG DAY 1 AND DAY15
     Route: 042
     Dates: start: 20210714, end: 20210728
  3. RUXIENCE [Suspect]
     Active Substance: RITUXIMAB-PVVR
     Dosage: 1000 MG DAY 1 AND DAY15
     Route: 042
     Dates: start: 20220131
  4. RUXIENCE [Suspect]
     Active Substance: RITUXIMAB-PVVR
     Dosage: 1000 MG DAY 1 AND DAY15
     Route: 042
     Dates: start: 20220131, end: 20220214
  5. WARFARIN [Concomitant]
     Active Substance: WARFARIN
     Dosage: 6 MG
     Route: 065

REACTIONS (9)
  - Atrial fibrillation [Unknown]
  - Therapeutic response shortened [Unknown]
  - Drug ineffective [Unknown]
  - Throat irritation [Recovered/Resolved]
  - Dental discomfort [Not Recovered/Not Resolved]
  - Oropharyngeal discomfort [Recovered/Resolved]
  - Off label use [Unknown]
  - Product use issue [Unknown]
  - Product dose omission issue [Unknown]

NARRATIVE: CASE EVENT DATE: 20201222
